FAERS Safety Report 17074448 (Version 2)
Quarter: 2019Q4

REPORT INFORMATION
  Report Type: Spontaneous
  Country: GB (occurrence: GB)
  Receive Date: 20191126
  Receipt Date: 20191205
  Transmission Date: 20200122
  Serious: Yes (Other)
  Sender: FDA-Public Use
  Company Number: GB-ROCHE-2481006

PATIENT
  Age: 63 Year
  Sex: Female

DRUGS (1)
  1. LUCENTIS [Suspect]
     Active Substance: RANIBIZUMAB
     Indication: INTRAOCULAR MELANOMA
     Dosage: UNK
     Route: 031

REACTIONS (5)
  - Disease progression [Unknown]
  - Neoplasm malignant [Unknown]
  - Off label use [Unknown]
  - Therapy non-responder [Unknown]
  - Product use in unapproved indication [Unknown]
